FAERS Safety Report 4414865-0 (Version None)
Quarter: 2004Q3

REPORT INFORMATION
  Report Type: 
  Country: None (occurrence: None)
  Receive Date: 20040804
  Receipt Date: 20031230
  Transmission Date: 20050211
  Serious: No
  Sender: FDA-Public Use
  Company Number: US-BRISTOL-MYERS SQUIBB COMPANY-12467155

PATIENT
  Sex: Female

DRUGS (1)
  1. GLUCOVANCE [Suspect]
     Indication: DIABETES MELLITUS
     Dosage: DURATION OF THERAPY:  ^A FEW WEEKS^
     Route: 048

REACTIONS (4)
  - ABDOMINAL PAIN [None]
  - DIZZINESS [None]
  - HEADACHE [None]
  - LOOSE STOOLS [None]
